FAERS Safety Report 15951781 (Version 1)
Quarter: 2019Q1

REPORT INFORMATION
  Report Type: Spontaneous
  Country: US (occurrence: US)
  Receive Date: 20190211
  Receipt Date: 20190211
  Transmission Date: 20190417
  Serious: No
  Sender: FDA-Public Use
  Company Number: US-BAYER-2019-028948

PATIENT
  Sex: Female

DRUGS (1)
  1. MIRALAX [Suspect]
     Active Substance: POLYETHYLENE GLYCOL 3350
     Indication: COLONOSCOPY
     Dosage: 17 G, QD
     Route: 048

REACTIONS (6)
  - Off label use [Unknown]
  - Oesophageal pain [Unknown]
  - Tongue discomfort [Unknown]
  - Product use in unapproved indication [Unknown]
  - Glossodynia [Unknown]
  - Oral discomfort [Unknown]
